FAERS Safety Report 16950735 (Version 1)
Quarter: 2019Q4

REPORT INFORMATION
  Report Type: Spontaneous
  Country: GB (occurrence: GB)
  Receive Date: 20191023
  Receipt Date: 20191023
  Transmission Date: 20200122
  Serious: Yes (Other)
  Sender: FDA-Public Use
  Company Number: GB-PFIZER INC-2019446997

PATIENT
  Age: 78 Year
  Sex: Male
  Weight: 74 kg

DRUGS (17)
  1. FINASTERIDE. [Concomitant]
     Active Substance: FINASTERIDE
     Indication: PROSTATIC DISORDER
     Dosage: 1 DF, 1X/DAY (BLISTER PACK)
     Dates: start: 20180625
  2. FLUCONAZOLE. [Suspect]
     Active Substance: FLUCONAZOLE
     Dosage: 1 DF, 1X/DAY
     Dates: start: 20190626, end: 20190710
  3. GAVISCON ADVANCE [POTASSIUM BICARBONATE;SODIUM ALGINATE] [Concomitant]
     Dosage: 5ML OR 10ML 4 TIMES/DAY
     Dates: start: 20180625
  4. OMEPRAZOLE. [Concomitant]
     Active Substance: OMEPRAZOLE
     Indication: GASTROINTESTINAL DISORDER
     Dosage: 1 DF, 1X/DAY (BLISTER PACK)
     Dates: start: 20180625, end: 20190523
  5. CLARITHROMYCIN. [Concomitant]
     Active Substance: CLARITHROMYCIN
     Indication: INFECTION
     Dosage: 2 DF, 1X/DAY (TO TREAT INFECTION)
     Dates: start: 20190603, end: 20190608
  6. DABIGATRAN ETEXILATE [Concomitant]
     Active Substance: DABIGATRAN ETEXILATE
     Indication: ANTICOAGULANT THERAPY
     Dosage: 2 DF, 1X/DAY
     Dates: start: 20180625
  7. FLUTICASONE. [Concomitant]
     Active Substance: FLUTICASONE
     Indication: RESPIRATORY DISORDER
     Dosage: 2 DF, 1X/DAY (PREVENTER AND OPEN AIRWAYS)
     Dates: start: 20180625
  8. RANITIDINE. [Concomitant]
     Active Substance: RANITIDINE
     Indication: DYSPEPSIA
     Dosage: 2 DF, 1X/DAY(BLISTER PACK)
     Dates: start: 20180625, end: 20190610
  9. BISOPROLOL [Concomitant]
     Active Substance: BISOPROLOL
     Indication: CARDIAC DISORDER
     Dosage: 1 DF, 1X/DAY (HEART BLISTER PACK)
     Dates: start: 20180625
  10. HYLO-FORTE [Concomitant]
     Active Substance: HYALURONATE SODIUM
     Dosage: USE 3 OR 4 TIMES DAILY. DISCARD 6 MONTHS AFTER
     Dates: start: 20190329
  11. SIMVASTATIN. [Concomitant]
     Active Substance: SIMVASTATIN
     Indication: LIPID METABOLISM DISORDER
     Dosage: 1 DF, 1X/DAY (AT NIGHT CHOLESTEROLA BLISTER PACK)
     Dates: start: 20180625
  12. CARBOMERUM 980 [Concomitant]
     Indication: DRY EYE
     Dosage: 2 DF, 1X/DAY (BLISTER PACK)
     Dates: start: 20180625
  13. CO-DYDRAMOL [Concomitant]
     Active Substance: ACETAMINOPHEN\DIHYDROCODEINE
     Dosage: 2 4 TIMES DAILY.
     Dates: start: 20180625, end: 20190610
  14. LACRI-LUBE [Concomitant]
     Dosage: 1 DF, 1X/DAY (LOWER LID 1CM. EACH NIGHT)
     Route: 061
     Dates: start: 20180625, end: 20190610
  15. TAMSULOSIN HYDROCHLORIDE. [Concomitant]
     Active Substance: TAMSULOSIN HYDROCHLORIDE
     Indication: PROSTATIC DISORDER
     Dosage: 1 DF, 1X/DAY (BLISTER PACK)
     Dates: start: 20180625
  16. LANSOPRAZOLE. [Concomitant]
     Active Substance: LANSOPRAZOLE
     Indication: GASTRIC DISORDER
     Dosage: 1 DF, 1X/DAY (FOR STOMACH)
     Dates: start: 20180523
  17. SALBUTAMOL [Concomitant]
     Active Substance: ALBUTEROL
     Dosage: 2 PUFF UP TO 2 HOURLY.
     Dates: start: 20180625

REACTIONS (3)
  - Skin discolouration [Unknown]
  - Urticaria [Recovered/Resolved]
  - Skin exfoliation [Unknown]

NARRATIVE: CASE EVENT DATE: 20190626
